FAERS Safety Report 5305181-3 (Version None)
Quarter: 2007Q2

REPORT INFORMATION
  Report Type: 
  Country: None (occurrence: None)
  Receive Date: 20070416
  Receipt Date: 20070403
  Transmission Date: 20071010
  Serious: Yes (Hospitalization)
  Sender: FDA-Public Use
  Company Number: 2217-127

PATIENT
  Age: 70 Year
  Sex: Female

DRUGS (2)
  1. AZMACORT [Suspect]
  2. PREDNISONE TAB [Suspect]

REACTIONS (1)
  - GASTROINTESTINAL HAEMORRHAGE [None]
